FAERS Safety Report 10891334 (Version 5)
Quarter: 2015Q3

REPORT INFORMATION
  Report Type: Report from Study
  Country: DE (occurrence: DE)
  Receive Date: 20150306
  Receipt Date: 20150722
  Transmission Date: 20151125
  Serious: Yes (Hospitalization)
  Sender: FDA-Public Use
  Company Number: DE-ASTRAZENECA-2015SE18766

PATIENT
  Age: 32551 Day
  Sex: Female

DRUGS (10)
  1. TICAGRELOR [Suspect]
     Active Substance: TICAGRELOR
     Indication: THROMBOSIS PROPHYLAXIS
     Route: 048
     Dates: start: 20150115
  2. TAZOBACTAM [Concomitant]
     Active Substance: TAZOBACTAM
  3. PARACETAMOL [Concomitant]
     Active Substance: ACETAMINOPHEN
  4. TOREM [Concomitant]
     Active Substance: TORSEMIDE
     Route: 065
  5. ACETYLSALICYLIC ACID [Suspect]
     Active Substance: ASPIRIN
     Indication: THROMBOSIS PROPHYLAXIS
     Dosage: NON AZ PRODUCT, MAINTANENCE
     Route: 048
     Dates: start: 20150115
  6. FRAXIPARIN [Concomitant]
     Active Substance: NADROPARIN CALCIUM
  7. SORTIS [Concomitant]
     Active Substance: ATORVASTATIN
     Route: 065
  8. BETALOC ZOC [Concomitant]
     Route: 065
  9. ATACAND [Concomitant]
     Active Substance: CANDESARTAN CILEXETIL
     Route: 065
  10. PANTOZOL [Concomitant]
     Active Substance: PANTOPRAZOLE SODIUM
     Route: 065

REACTIONS (5)
  - Diarrhoea [Recovered/Resolved]
  - Hydronephrosis [Recovered/Resolved]
  - Haematuria [Recovered/Resolved]
  - Dyspnoea exertional [Recovered/Resolved]
  - Infection [Recovered/Resolved]

NARRATIVE: CASE EVENT DATE: 20150209
